FAERS Safety Report 13884660 (Version 2)
Quarter: 2017Q3

REPORT INFORMATION
  Report Type: Spontaneous
  Country: US (occurrence: US)
  Receive Date: 20170821
  Receipt Date: 20170911
  Transmission Date: 20171127
  Serious: Yes (Disabling)
  Sender: FDA-Public Use
  Company Number: US-TORRENT-00003275

PATIENT
  Age: 64 Year
  Sex: Male

DRUGS (3)
  1. ROPINIROLE. [Concomitant]
     Active Substance: ROPINIROLE
  2. CARBIDOPA 25 MG; LEVODOPA 100 MG [Concomitant]
  3. TOLTERODINE [Suspect]
     Active Substance: TOLTERODINE

REACTIONS (3)
  - Somnolence [Recovered/Resolved]
  - Memory impairment [Recovered/Resolved]
  - Condition aggravated [Recovered/Resolved]
